FAERS Safety Report 13390337 (Version 1)
Quarter: 2017Q1

REPORT INFORMATION
  Report Type: Report from Study
  Country: CA (occurrence: CA)
  Receive Date: 20170331
  Receipt Date: 20170331
  Transmission Date: 20170429
  Serious: Yes (Hospitalization)
  Sender: FDA-Public Use
  Company Number: CA-ROCHE-1906870

PATIENT
  Age: 64 Year
  Sex: Male

DRUGS (42)
  1. ACP-196 (BTK INHIBITOR) [Suspect]
     Active Substance: ACALABRUTINIB
     Dosage: ACTUAL DOSE TAKEN 1
     Route: 048
     Dates: start: 20170213, end: 20170213
  2. ACETAMINOPHEN. [Concomitant]
     Active Substance: ACETAMINOPHEN
     Dosage: FREQUENCY OTHER
     Route: 065
     Dates: start: 20161208, end: 20161208
  3. NORMAL SALINE [Concomitant]
     Active Substance: SODIUM CHLORIDE
     Dosage: 150 CC
     Route: 065
     Dates: start: 20170309
  4. METHYLPREDNISOLONE. [Concomitant]
     Active Substance: METHYLPREDNISOLONE
     Indication: PROPHYLAXIS
     Dosage: FREQUECY OTHER?60 MINS PRIOR TO GA101 INFUSION
     Route: 065
     Dates: start: 20161124, end: 20161124
  5. ACETAMINOPHEN. [Concomitant]
     Active Substance: ACETAMINOPHEN
     Dosage: FREQUENCY OTHER?30-60 MINS PRIOR TO GA101
     Route: 065
     Dates: start: 20161125, end: 20161125
  6. DIPHENHYDRAMINE. [Concomitant]
     Active Substance: DIPHENHYDRAMINE
     Dosage: FREQUENCY OTHER?30-60 MINS PRIOR TO GA101
     Route: 065
     Dates: start: 20161125, end: 20161125
  7. DIPHENHYDRAMINE. [Concomitant]
     Active Substance: DIPHENHYDRAMINE
     Route: 065
     Dates: start: 20161201, end: 20161201
  8. RIVAROXABAN [Concomitant]
     Active Substance: RIVAROXABAN
     Route: 065
     Dates: start: 20170307, end: 20170307
  9. OBINUTUZUMAB [Suspect]
     Active Substance: OBINUTUZUMAB
     Route: 042
     Dates: start: 20161125, end: 20161125
  10. OBINUTUZUMAB [Suspect]
     Active Substance: OBINUTUZUMAB
     Route: 042
     Dates: start: 20161201, end: 20161201
  11. LOSARTAN. [Concomitant]
     Active Substance: LOSARTAN
     Indication: HYPERTENSION
     Route: 065
     Dates: start: 2006
  12. TRAMADOL. [Concomitant]
     Active Substance: TRAMADOL
     Indication: PAIN
     Dosage: 1-2 PILLS AS NEEDED
     Route: 065
     Dates: start: 201609
  13. MAXERAN [Concomitant]
     Active Substance: METOCLOPRAMIDE HYDROCHLORIDE
     Indication: NAUSEA
     Dosage: AS NEEDED
     Route: 065
     Dates: start: 20161012, end: 20161019
  14. ONDASETRON [Concomitant]
     Active Substance: ONDANSETRON
     Indication: NAUSEA
     Dosage: AS NEEDED
     Route: 065
     Dates: start: 201609
  15. DIPHENHYDRAMINE. [Concomitant]
     Active Substance: DIPHENHYDRAMINE
     Indication: PROPHYLAXIS
     Dosage: FREQUECY OTHER?30-60 MINS PRIOR TO GA101 INFUSION THEN?EVERY 4 HOURS UNTIL THE END OF THE INFUSION
     Route: 065
     Dates: start: 20161124, end: 20161124
  16. OBINUTUZUMAB [Suspect]
     Active Substance: OBINUTUZUMAB
     Indication: CHRONIC LYMPHOCYTIC LEUKAEMIA
     Dosage: 6 TREATMENT CYCLES.
     Route: 042
     Dates: start: 20161123, end: 20161123
  17. ACP-196 (BTK INHIBITOR) [Suspect]
     Active Substance: ACALABRUTINIB
     Indication: CHRONIC LYMPHOCYTIC LEUKAEMIA
     Dosage: CYCLE 1 DAY 1  ACTUAL DOSE TAKEN BOTH
     Route: 048
     Dates: start: 20161026, end: 20170212
  18. RANITIDINE. [Concomitant]
     Active Substance: RANITIDINE
     Dosage: ONE TIMES ONLY
     Route: 065
     Dates: start: 20161208, end: 20161208
  19. MOXIFLOXACIN. [Concomitant]
     Active Substance: MOXIFLOXACIN
     Indication: CONJUNCTIVITIS
     Dosage: 1 DROP
     Route: 065
     Dates: start: 20161123, end: 20161124
  20. ACETAMINOPHEN. [Concomitant]
     Active Substance: ACETAMINOPHEN
     Indication: PROPHYLAXIS
     Dosage: FREQUECY OTHER?30-60 MINS PRIOR TO GA101 INFUSION THEN?EVERY 4 HOURS UNTIL THE END OF THE INFUSION
     Route: 065
     Dates: start: 20161124, end: 20161124
  21. ACETAMINOPHEN. [Concomitant]
     Active Substance: ACETAMINOPHEN
     Route: 065
     Dates: start: 20161201, end: 20161201
  22. ALLOPURINOL. [Concomitant]
     Active Substance: ALLOPURINOL
     Indication: PROPHYLAXIS
     Route: 065
     Dates: start: 20161122, end: 20161126
  23. REACTINE (CANADA) [Concomitant]
     Active Substance: CETIRIZINE HYDROCHLORIDE
     Route: 065
     Dates: start: 20161208, end: 20161208
  24. RANITIDINE. [Concomitant]
     Active Substance: RANITIDINE
     Dosage: ONE TIME ONLY
     Route: 065
     Dates: start: 20161124, end: 20161124
  25. REACTINE (CANADA) [Concomitant]
     Active Substance: CETIRIZINE HYDROCHLORIDE
     Indication: PROPHYLAXIS
     Dosage: ONE TIME ONLY
     Route: 065
     Dates: start: 20161125, end: 20161125
  26. OMEGA 3 [Concomitant]
     Active Substance: OMEGA-3 FATTY ACIDS
     Route: 065
     Dates: start: 20170205
  27. NORMAL SALINE [Concomitant]
     Active Substance: SODIUM CHLORIDE
     Dosage: 125 CC
     Route: 065
     Dates: start: 20170308
  28. OBINUTUZUMAB [Suspect]
     Active Substance: OBINUTUZUMAB
     Route: 042
     Dates: start: 20161221, end: 20161221
  29. REACTINE (CANADA) [Concomitant]
     Active Substance: CETIRIZINE HYDROCHLORIDE
     Dosage: ONE TIME ONLY
     Route: 065
     Dates: start: 20161201, end: 20161201
  30. TOBRAMYCIN. [Concomitant]
     Active Substance: TOBRAMYCIN
     Dosage: 1 DROP
     Route: 065
     Dates: start: 20161228, end: 20170104
  31. ACP-196 (BTK INHIBITOR) [Suspect]
     Active Substance: ACALABRUTINIB
     Route: 048
     Dates: start: 20170214
  32. TYLENOL [Concomitant]
     Active Substance: ACETAMINOPHEN
     Indication: OSTEOARTHRITIS
     Dosage: 1-2 PILLS AS NEEDED
     Route: 065
     Dates: start: 2010
  33. METHYLPREDNISOLONE. [Concomitant]
     Active Substance: METHYLPREDNISOLONE
     Dosage: FREQUENCY OTHER?60 MINS PRIOR TO GA101 INFUSION
     Route: 065
     Dates: start: 20161125, end: 20161125
  34. ACETAMINOPHEN. [Concomitant]
     Active Substance: ACETAMINOPHEN
     Dosage: ONE TIMES ONLY
     Route: 065
     Dates: start: 20161221, end: 20161221
  35. DIPHENHYDRAMINE. [Concomitant]
     Active Substance: DIPHENHYDRAMINE
     Dosage: FREQUENCY OTHER
     Route: 065
     Dates: start: 20161208, end: 20161208
  36. FRAGMIN [Concomitant]
     Active Substance: DALTEPARIN SODIUM
     Route: 065
     Dates: start: 20170307, end: 20170307
  37. LEVOFLOXACIN. [Concomitant]
     Active Substance: LEVOFLOXACIN
     Route: 065
     Dates: start: 20161027, end: 20161106
  38. AMOXICILLIN. [Concomitant]
     Active Substance: AMOXICILLIN
     Route: 065
     Dates: start: 20161027, end: 20161106
  39. RANITIDINE. [Concomitant]
     Active Substance: RANITIDINE
     Indication: INFUSION RELATED REACTION
     Route: 065
     Dates: start: 20161027, end: 20161106
  40. RANITIDINE. [Concomitant]
     Active Substance: RANITIDINE
     Dosage: ONE TIME ONLY
     Route: 065
     Dates: start: 20161125, end: 20161125
  41. RANITIDINE. [Concomitant]
     Active Substance: RANITIDINE
     Dosage: ONE TIME ONLY
     Route: 065
     Dates: start: 20161201, end: 20161201
  42. OLOPATADINE [Concomitant]
     Active Substance: OLOPATADINE
     Indication: CONJUNCTIVITIS
     Route: 065
     Dates: start: 20161221, end: 20161228

REACTIONS (1)
  - Abdominal pain [Not Recovered/Not Resolved]

NARRATIVE: CASE EVENT DATE: 20170307
